FAERS Safety Report 7678096-3 (Version None)
Quarter: 2011Q3

REPORT INFORMATION
  Report Type: 
  Country: None (occurrence: None)
  Receive Date: 20110811
  Receipt Date: 20110801
  Transmission Date: 20111222
  Serious: Yes (Hospitalization)
  Sender: FDA-Public Use
  Company Number: US-JNJFOC-20110100407

PATIENT
  Sex: Female
  Weight: 48.4 kg

DRUGS (8)
  1. REMICADE [Suspect]
     Indication: COLITIS ULCERATIVE
     Route: 042
     Dates: start: 20100828
  2. REMICADE [Suspect]
     Dosage: 5TH DOSE
     Route: 042
     Dates: start: 20101115
  3. MESALAMINE [Concomitant]
     Route: 048
  4. MERCAPTOPURINE [Concomitant]
  5. PREDNISONE [Concomitant]
  6. METRONIDAZOLE [Concomitant]
  7. REMICADE [Suspect]
     Route: 042
     Dates: start: 20100909
  8. REMICADE [Suspect]
     Dosage: 3RD DOSE
     Route: 042
     Dates: start: 20100916

REACTIONS (2)
  - HAEMOGLOBIN DECREASED [None]
  - COLITIS ULCERATIVE [None]
